FAERS Safety Report 8742143 (Version 2)
Quarter: 2013Q1

REPORT INFORMATION
  Report Type: Spontaneous
  Country: BR (occurrence: BR)
  Receive Date: 20120824
  Receipt Date: 20130312
  Transmission Date: 20140127
  Serious: Yes (Other)
  Sender: FDA-Public Use
  Company Number: PHHY2012BR071503

PATIENT
  Age: 69 Year
  Sex: Female

DRUGS (2)
  1. DIOVAN HCT [Suspect]
     Indication: HYPERTENSION
     Dosage: 1 DF,(320 MG VALS, 12.5 MG HYDR) UNK
  2. INFLUENZA VIRUS VACC SEASONAL [Suspect]
     Indication: IMMUNISATION
     Dosage: 1 DF

REACTIONS (2)
  - Hypersensitivity [Recovered/Resolved]
  - Influenza [Recovered/Resolved]
